FAERS Safety Report 4390021-X (Version None)
Quarter: 2004Q2

REPORT INFORMATION
  Report Type: 
  Country: None (occurrence: None)
  Receive Date: 20040628
  Receipt Date: 20040614
  Transmission Date: 20050107
  Serious: Yes (Hospitalization)
  Sender: FDA-Public Use
  Company Number: 2004040852

PATIENT
  Age: 3 Month
  Sex: Female

DRUGS (1)
  1. DIFLUCAN [Suspect]
     Indication: ILL-DEFINED DISORDER
     Dosage: 1 IN 1 D

REACTIONS (4)
  - DEHYDRATION [None]
  - DISCOMFORT [None]
  - MEDICATION ERROR [None]
  - OVERDOSE [None]
